FAERS Safety Report 21455839 (Version 1)
Quarter: 2022Q4

REPORT INFORMATION
  Report Type: Spontaneous
  Country: US (occurrence: US)
  Receive Date: 20221014
  Receipt Date: 20221014
  Transmission Date: 20230113
  Serious: No
  Sender: FDA-Public Use
  Company Number: US-CHIESI-2022CHF02479

PATIENT
  Age: 11 Year
  Sex: Male
  Weight: 33 kg

DRUGS (3)
  1. FERRIPROX [Suspect]
     Active Substance: DEFERIPRONE
     Indication: Haemochromatosis
     Dosage: 1000 MILLIGRAM, BID
     Route: 048
     Dates: start: 20220403
  2. FERRIPROX [Suspect]
     Active Substance: DEFERIPRONE
     Indication: Transfusion
  3. FERRIPROX [Suspect]
     Active Substance: DEFERIPRONE
     Indication: Sickle cell disease

REACTIONS (5)
  - Gastric disorder [Recovering/Resolving]
  - Dizziness [Recovering/Resolving]
  - Fatigue [Recovering/Resolving]
  - Somnolence [Recovering/Resolving]
  - Disturbance in attention [Recovering/Resolving]

NARRATIVE: CASE EVENT DATE: 20220401
